FAERS Safety Report 7049333-3 (Version None)
Quarter: 2010Q4

REPORT INFORMATION
  Report Type: 
  Country: None (occurrence: None)
  Receive Date: 20101018
  Receipt Date: 20100812
  Transmission Date: 20110411
  Serious: No
  Sender: FDA-Public Use
  Company Number: A0876633A

PATIENT
  Age: 68 Year
  Sex: Female

DRUGS (1)
  1. CEFTIN [Suspect]
     Route: 048

REACTIONS (1)
  - RASH GENERALISED [None]
